FAERS Safety Report 5008714-X (Version None)
Quarter: 2006Q2

REPORT INFORMATION
  Report Type: 
  Country: None (occurrence: None)
  Receive Date: 20060518
  Receipt Date: 20060509
  Transmission Date: 20061013
  Serious: Yes (Hospitalization, Other)
  Sender: FDA-Public Use
  Company Number: 2006002810

PATIENT
  Age: 78 Year
  Sex: Female

DRUGS (7)
  1. LYRICA [Suspect]
     Indication: PAIN IN EXTREMITY
     Dates: start: 20051001
  2. POLYETHYLENE GLYCOL [Suspect]
     Indication: ILL-DEFINED DISORDER
     Dates: end: 20051229
  3. ACTOS [Suspect]
     Indication: ILL-DEFINED DISORDER
  4. OXYCONTIN [Suspect]
     Indication: PAIN
  5. ALL OTHER THERAPEUTIC PRODUCTS (ALL OTHER THERAPEUTIC PRODUCTS) [Suspect]
     Indication: ILL-DEFINED DISORDER
  6. TOPROL-XL [Concomitant]
  7. MAVIK [Concomitant]

REACTIONS (15)
  - ASTHENIA [None]
  - CATARACT [None]
  - DIARRHOEA [None]
  - DRUG INTERACTION [None]
  - FATIGUE [None]
  - HYPOTENSION [None]
  - IMPAIRED HEALING [None]
  - INGROWING NAIL [None]
  - LETHARGY [None]
  - LOSS OF CONSCIOUSNESS [None]
  - OEDEMA PERIPHERAL [None]
  - OVERDOSE [None]
  - PAIN IN EXTREMITY [None]
  - THERAPY REGIMEN CHANGED [None]
  - VISION BLURRED [None]
